FAERS Safety Report 9604374 (Version 2)
Quarter: 2013Q4

REPORT INFORMATION
  Report Type: Report from Study
  Country: DE (occurrence: DE)
  Receive Date: 20131008
  Receipt Date: 20131016
  Transmission Date: 20140711
  Serious: Yes (Other)
  Sender: FDA-Public Use
  Company Number: PHHY2013DE111776

PATIENT
  Sex: Female
  Weight: 56.9 kg

DRUGS (1)
  1. GILENYA [Suspect]
     Indication: MULTIPLE SCLEROSIS
     Dosage: 0.5 MG, QD
     Route: 048
     Dates: start: 20121001

REACTIONS (4)
  - Multiple sclerosis relapse [Unknown]
  - Optic neuritis [Recovering/Resolving]
  - Pain in extremity [Recovering/Resolving]
  - Gait disturbance [Recovering/Resolving]
